FAERS Safety Report 9185098 (Version 2)
Quarter: 2013Q2

REPORT INFORMATION
  Report Type: Spontaneous
  Country: TR (occurrence: TR)
  Receive Date: 20130325
  Receipt Date: 20130510
  Transmission Date: 20140414
  Serious: Yes (Death, Hospitalization, Other)
  Sender: FDA-Public Use
  Company Number: PHHY2013TR027102

PATIENT
  Age: 48 Year
  Sex: Male

DRUGS (6)
  1. FLUOROURACIL [Suspect]
     Indication: GASTRIC CANCER STAGE IV
     Dosage: 400 MG/M2, UNK
  2. FLUOROURACIL [Suspect]
     Dosage: 2400 MG/M2, UNK
  3. FOLINIC ACID [Suspect]
     Indication: GASTRIC CANCER STAGE IV
     Dosage: 400 MG/M2, UNK
  4. DOCETAXEL [Concomitant]
     Indication: GASTRIC CANCER STAGE IV
  5. CISPLATIN [Concomitant]
     Indication: GASTRIC CANCER STAGE IV
  6. IRINOTECAN [Concomitant]
     Indication: GASTRIC CANCER STAGE IV

REACTIONS (13)
  - Gastric cancer stage IV [Fatal]
  - Malignant neoplasm progression [Fatal]
  - Stress cardiomyopathy [Unknown]
  - Tachycardia [Unknown]
  - Dyspnoea [Unknown]
  - Breath sounds abnormal [Unknown]
  - Left ventricular dysfunction [Unknown]
  - Hyperkinesia [Unknown]
  - Ventricular tachycardia [Unknown]
  - Ventricular fibrillation [Recovering/Resolving]
  - Ascites [Unknown]
  - Metastasis [Unknown]
  - Peritonitis [Unknown]
